FAERS Safety Report 20951492 (Version 1)
Quarter: 2022Q2

REPORT INFORMATION
  Report Type: Spontaneous
  Country: US (occurrence: None)
  Receive Date: 20220610
  Receipt Date: 20220610
  Transmission Date: 20220720
  Serious: Yes (Other)
  Sender: FDA-Public Use
  Company Number: None

PATIENT
  Age: 40 Year
  Sex: Male
  Weight: 140.9 kg

DRUGS (1)
  1. BEBTELOVIMAB [Suspect]
     Active Substance: BEBTELOVIMAB
     Indication: SARS-CoV-2 test positive
     Dates: start: 20220609, end: 20220609

REACTIONS (5)
  - Sensation of foreign body [None]
  - Tachycardia [None]
  - Hyperventilation [None]
  - Cough [None]
  - Panic attack [None]

NARRATIVE: CASE EVENT DATE: 20220609
